FAERS Safety Report 25525887 (Version 3)
Quarter: 2025Q4

REPORT INFORMATION
  Report Type: Report from Study
  Country: CA (occurrence: CA)
  Receive Date: 20250707
  Receipt Date: 20251008
  Transmission Date: 20260118
  Serious: Yes (Other)
  Sender: SANDOZ
  Company Number: CA-SANDOZ-SDZ2025CA037138

PATIENT
  Sex: Female

DRUGS (2)
  1. HYRIMOZ [Suspect]
     Active Substance: ADALIMUMAB-ADAZ
     Indication: Crohn^s disease
     Dosage: 40 MG, Q2W(HYRIMOZ 40 MG SOLUTION FOR INJECTION IN PRE-FILLED PEN)
     Route: 058
     Dates: start: 20240214
  2. HYRIMOZ [Suspect]
     Active Substance: ADALIMUMAB-ADAZ
     Dosage: 40 MG, BIW (40 MG/0.8 ML)
     Route: 058
     Dates: start: 20250214

REACTIONS (9)
  - Uveitis [Unknown]
  - Crohn^s disease [Unknown]
  - Bowel movement irregularity [Unknown]
  - Dyschezia [Unknown]
  - Irritable bowel syndrome [Unknown]
  - Faeces soft [Unknown]
  - Constipation [Unknown]
  - Peripheral swelling [Not Recovered/Not Resolved]
  - Tremor [Unknown]

NARRATIVE: CASE EVENT DATE: 20250101
